FAERS Safety Report 5704868-8 (Version None)
Quarter: 2008Q2

REPORT INFORMATION
  Report Type: 
  Country: None (occurrence: None)
  Receive Date: 20080414
  Receipt Date: 20080404
  Transmission Date: 20081010
  Serious: Yes (Other)
  Sender: FDA-Public Use
  Company Number: ID-PFIZER INC-2008029550

PATIENT
  Age: 35 Year
  Sex: Female

DRUGS (4)
  1. CELECOXIB [Suspect]
     Route: 048
     Dates: start: 20080402, end: 20080403
  2. MECOBALAMIN [Concomitant]
     Route: 048
     Dates: start: 20080402, end: 20080403
  3. CODEINE SUL TAB [Concomitant]
     Route: 048
     Dates: start: 20080402, end: 20080403
  4. VITAMIN CAP [Concomitant]
     Route: 048
     Dates: start: 20080402, end: 20080403

REACTIONS (4)
  - BLISTER [None]
  - BURNING SENSATION [None]
  - GENERALISED ERYTHEMA [None]
  - OEDEMA PERIPHERAL [None]
